FAERS Safety Report 8116604-9 (Version None)
Quarter: 2012Q1

REPORT INFORMATION
  Report Type: 
  Country: None (occurrence: None)
  Receive Date: 20120206
  Receipt Date: 20120123
  Transmission Date: 20120608
  Serious: Yes (Hospitalization, Other)
  Sender: FDA-Public Use
  Company Number: PHEH2011US009829

PATIENT
  Sex: Female

DRUGS (7)
  1. GLEEVEC [Suspect]
     Dosage: 400 MG, EVERY OTHER DAY
  2. GLEEVEC [Suspect]
     Dosage: 100 MG, UNK
     Route: 048
  3. CLINORIL [Concomitant]
     Indication: ARTHRALGIA
     Dosage: 150 MG, BID
     Route: 048
  4. PRILOSEC [Concomitant]
     Dosage: 20 MG, DAILY
     Route: 048
  5. GLEEVEC [Suspect]
     Indication: GASTROINTESTINAL STROMAL TUMOUR
     Dosage: 400 MG, DAILY
     Route: 048
     Dates: start: 20111026
  6. GLEEVEC [Suspect]
     Dosage: UNK UKN, UNK
     Dates: start: 20120105
  7. DIOVAN [Concomitant]
     Dosage: 320/12.5 MG, DAILY
     Route: 048

REACTIONS (23)
  - VOMITING [None]
  - ASTHENIA [None]
  - HYPOTHYROIDISM [None]
  - ABDOMINAL PAIN [None]
  - RASH [None]
  - ALANINE AMINOTRANSFERASE INCREASED [None]
  - DYSPHONIA [None]
  - LEUKOCYTOSIS [None]
  - DYSPNOEA [None]
  - NAUSEA [None]
  - DEHYDRATION [None]
  - BACK PAIN [None]
  - ASPARTATE AMINOTRANSFERASE INCREASED [None]
  - CONSTIPATION [None]
  - HYPONATRAEMIA [None]
  - RENAL FAILURE ACUTE [None]
  - BURNING SENSATION [None]
  - COUGH [None]
  - AMYLASE INCREASED [None]
  - DIARRHOEA [None]
  - MALAISE [None]
  - DEPRESSION [None]
  - FLUSHING [None]
